FAERS Safety Report 5163573-X (Version None)
Quarter: 2006Q4

REPORT INFORMATION
  Report Type: 
  Country: None (occurrence: None)
  Receive Date: 20061124
  Receipt Date: 20061115
  Transmission Date: 20070319
  Serious: Yes (Life-Threatening, Hospitalization, Disabling, Other)
  Sender: FDA-Public Use
  Company Number: 2006141645

PATIENT
  Age: 72 Year
  Sex: Female
  Weight: 101.1521 kg

DRUGS (1)
  1. CELEBREX [Suspect]
     Indication: ARTHRITIS
     Dosage: 300 MG (100 MG, 3 IN 1 D)
     Dates: start: 20030101, end: 20050601

REACTIONS (6)
  - ANXIETY [None]
  - ARTHRITIS [None]
  - CONDITION AGGRAVATED [None]
  - DYSPNOEA [None]
  - MYOCARDIAL INFARCTION [None]
  - RESPIRATORY DISORDER [None]
